FAERS Safety Report 22101371 (Version 1)
Quarter: 2023Q1

REPORT INFORMATION
  Report Type: Spontaneous
  Country: NL (occurrence: NL)
  Receive Date: 20230316
  Receipt Date: 20230316
  Transmission Date: 20230417
  Serious: Yes (Life-Threatening)
  Sender: FDA-Public Use
  Company Number: None

PATIENT
  Sex: Male
  Weight: 100 kg

DRUGS (2)
  1. LACOSAMIDE [Suspect]
     Active Substance: LACOSAMIDE
     Indication: Epilepsy
     Dosage: 100 MILLIGRAM, 2X/12 HOURS (2D 100 MG)
     Dates: start: 20220325, end: 20221110
  2. OXCARBAZEPINE [Suspect]
     Active Substance: OXCARBAZEPINE
     Indication: Epilepsy
     Dosage: 1 DOSAGE FORM EVERY 8 HOURS (600-600-900 MG)
     Dates: start: 20210501

REACTIONS (3)
  - Depressed mood [Recovered/Resolved]
  - Abnormal behaviour [Recovered/Resolved]
  - Impulsive behaviour [Recovered/Resolved]
